FAERS Safety Report 6890569-X (Version None)
Quarter: 2010Q3

REPORT INFORMATION
  Report Type: 
  Country: None (occurrence: None)
  Receive Date: 20100731
  Receipt Date: 20081203
  Transmission Date: 20110219
  Serious: No
  Sender: FDA-Public Use
  Company Number: US-PFIZER INC-2008151943

PATIENT
  Sex: Female
  Weight: 68.038 kg

DRUGS (8)
  1. LIPITOR [Suspect]
     Indication: BLOOD CHOLESTEROL INCREASED
     Dosage: 10 MG, 1X/DAY
     Route: 048
     Dates: start: 20081120
  2. AVALIDE [Concomitant]
     Dosage: UNK
  3. TRICOR [Concomitant]
     Dosage: UNK
  4. METFORMIN HYDROCHLORIDE [Concomitant]
     Dosage: UNK
  5. SYNTHROID [Concomitant]
     Dosage: UNK
  6. TOPROL-XL [Concomitant]
     Dosage: UNK
  7. VITAMINS [Concomitant]
     Dosage: UNK
  8. CALCIUM [Concomitant]
     Dosage: UNK

REACTIONS (1)
  - MYALGIA [None]
